FAERS Safety Report 24686818 (Version 1)
Quarter: 2024Q4

REPORT INFORMATION
  Report Type: Spontaneous
  Country: SG (occurrence: SG)
  Receive Date: 20241202
  Receipt Date: 20241202
  Transmission Date: 20250114
  Serious: Yes (Other)
  Sender: AMGEN
  Company Number: SG-AMGEN-SGPSP2024232389

PATIENT

DRUGS (2)
  1. XGEVA [Suspect]
     Active Substance: DENOSUMAB
     Indication: Neoplasm
     Dosage: UNK
     Route: 065
  2. PEMBROLIZUMAB [Suspect]
     Active Substance: PEMBROLIZUMAB
     Indication: Neoplasm
     Dosage: 200 MILLIGRAM, Q3WK
     Route: 040

REACTIONS (16)
  - Thrombocytopenia [Unknown]
  - Neoplasm malignant [Unknown]
  - Immune-mediated enterocolitis [Unknown]
  - Colitis [Unknown]
  - Pneumonitis [Unknown]
  - Unevaluable event [Unknown]
  - Adverse event [Unknown]
  - Dysgeusia [Unknown]
  - C-telopeptide increased [Unknown]
  - Fatigue [Unknown]
  - Constipation [Unknown]
  - Nausea [Unknown]
  - Erythema [Unknown]
  - Pyrexia [Unknown]
  - Thyroiditis [Unknown]
  - Haematuria [Unknown]
